FAERS Safety Report 26141256 (Version 1)
Quarter: 2025Q4

REPORT INFORMATION
  Report Type: Spontaneous
  Country: KE (occurrence: KE)
  Receive Date: 20251210
  Receipt Date: 20251210
  Transmission Date: 20260118
  Serious: Yes (Death)
  Sender: PFIZER
  Company Number: KE-PFIZER INC-PV202500144410

PATIENT
  Age: 53 Year
  Sex: Male

DRUGS (1)
  1. INLYTA [Suspect]
     Active Substance: AXITINIB
     Indication: Renal cell carcinoma
     Dosage: 10MG (2 X 5MG TABLETS)

REACTIONS (1)
  - Death [Fatal]
